FAERS Safety Report 16024954 (Version 2)
Quarter: 2019Q3

REPORT INFORMATION
  Report Type: Spontaneous
  Country: US (occurrence: US)
  Receive Date: 20190301
  Receipt Date: 20190822
  Transmission Date: 20191004
  Serious: Yes (Other)
  Sender: FDA-Public Use
  Company Number: US-SA-2019SA052196

PATIENT
  Age: 54 Year
  Sex: Female
  Weight: 71 kg

DRUGS (4)
  1. FEMARA [Concomitant]
     Active Substance: LETROZOLE
  2. DOCETAXEL. [Suspect]
     Active Substance: DOCETAXEL
     Dosage: 138 MG, QOW
     Route: 042
     Dates: start: 20121226, end: 20121226
  3. ADRIAMYCIN [Concomitant]
     Active Substance: DOXORUBICIN HYDROCHLORIDE
     Dosage: UNK
  4. DOCETAXEL. [Suspect]
     Active Substance: DOCETAXEL
     Indication: BREAST CANCER FEMALE
     Dosage: 138 MG, QOW
     Route: 042
     Dates: start: 20121205, end: 20121205

REACTIONS (1)
  - Alopecia [Recovering/Resolving]
